FAERS Safety Report 5912327-2 (Version None)
Quarter: 2008Q4

REPORT INFORMATION
  Report Type: 
  Country: None (occurrence: None)
  Receive Date: 20081008
  Receipt Date: 20081001
  Transmission Date: 20090506
  Serious: Yes (Hospitalization, Disabling)
  Sender: FDA-Public Use
  Company Number: JP-MERCK-0805USA04451

PATIENT
  Age: 74 Year
  Sex: Male
  Weight: 49 kg

DRUGS (2)
  1. HYZAAR [Suspect]
     Indication: HYPERTENSION
     Route: 048
     Dates: start: 20070428, end: 20070512
  2. OLMETEC [Concomitant]
     Indication: HYPERTENSION
     Route: 048
     Dates: end: 20080427

REACTIONS (2)
  - AUTOIMMUNE HEPATITIS [None]
  - LIVER DISORDER [None]
